FAERS Safety Report 9068401 (Version 1)
Quarter: 2013Q1

REPORT INFORMATION
  Report Type: Spontaneous
  Country: US (occurrence: None)
  Receive Date: 20130212
  Receipt Date: 20130212
  Transmission Date: 20140127
  Serious: Yes (Life-Threatening, Hospitalization, Disabling, Other)
  Sender: FDA-Public Use
  Company Number: None

PATIENT
  Age: 31 Year
  Sex: Female
  Weight: 81.65 kg

DRUGS (1)
  1. TORADOL [Suspect]
     Indication: PAIN
     Dosage: I DON^T KNOW 1 TIME OTHER
     Route: 050
     Dates: start: 20130209, end: 20130209

REACTIONS (4)
  - Pain [None]
  - Dyspnoea [None]
  - Drug hypersensitivity [None]
  - Feeling abnormal [None]
